FAERS Safety Report 6486820-0 (Version None)
Quarter: 2009Q4

REPORT INFORMATION
  Report Type: 
  Country: None (occurrence: None)
  Receive Date: 20091210
  Receipt Date: 20091207
  Transmission Date: 20100525
  Serious: Yes (Death)
  Sender: FDA-Public Use
  Company Number: PHEH2009US17418

PATIENT
  Sex: Female

DRUGS (1)
  1. RECLAST [Suspect]
     Indication: OSTEOPOROSIS POSTMENOPAUSAL
     Dosage: 5 MG ONCE YEARLY
     Dates: start: 20081226, end: 20081226

REACTIONS (2)
  - DISEASE PROGRESSION [None]
  - PANCREATIC CARCINOMA METASTATIC [None]
